FAERS Safety Report 17472231 (Version 1)
Quarter: 2020Q1

REPORT INFORMATION
  Report Type: Spontaneous
  Country: DE (occurrence: DE)
  Receive Date: 20200228
  Receipt Date: 20200228
  Transmission Date: 20200409
  Serious: Yes (Hospitalization, Other)
  Sender: FDA-Public Use
  Company Number: DE-ACCORD-173830

PATIENT
  Age: 11 Year
  Sex: Female

DRUGS (2)
  1. LEVETIRACETAM. [Suspect]
     Active Substance: LEVETIRACETAM
     Indication: EPILEPSY
     Dosage: DAILY DOSE:1250 MG EVERY DAYS 2 SEPARATED DOSES
     Route: 048
     Dates: start: 20191007
  2. BUCCOLAM [Suspect]
     Active Substance: MIDAZOLAM HYDROCHLORIDE
     Indication: EPILEPSY
     Route: 002
     Dates: start: 20191007

REACTIONS (5)
  - Epileptic aura [Recovered/Resolved]
  - Underdose [Unknown]
  - Seizure [Recovered/Resolved]
  - Vomiting [Recovered/Resolved]
  - Fall [Unknown]

NARRATIVE: CASE EVENT DATE: 20191022
